FAERS Safety Report 5360067-3 (Version None)
Quarter: 2007Q2

REPORT INFORMATION
  Report Type: 
  Country: None (occurrence: None)
  Receive Date: 20070618
  Receipt Date: 20060706
  Transmission Date: 20071010
  Serious: No
  Sender: FDA-Public Use
  Company Number: US-ASTRAZENECA-2006UW14003

PATIENT
  Age: 52 Year
  Sex: Female
  Weight: 64 kg

DRUGS (4)
  1. FASLODEX [Suspect]
     Indication: BREAST CANCER
     Route: 030
  2. TOPROL-XL [Concomitant]
     Route: 048
  3. PAXIL [Concomitant]
  4. BUSPAR [Concomitant]

REACTIONS (1)
  - FREQUENT BOWEL MOVEMENTS [None]
